FAERS Safety Report 11141447 (Version 5)
Quarter: 2016Q1

REPORT INFORMATION
  Report Type: Spontaneous
  Country: US (occurrence: US)
  Receive Date: 20150525
  Receipt Date: 20160109
  Transmission Date: 20160525
  Serious: Yes (Hospitalization)
  Sender: FDA-Public Use
  Company Number: US-JNJFOC-20140417793

PATIENT
  Age: 14 Year
  Sex: Male

DRUGS (16)
  1. RISPERDAL [Suspect]
     Active Substance: RISPERIDONE
     Indication: ATTENTION DEFICIT/HYPERACTIVITY DISORDER
     Route: 048
     Dates: end: 2008
  2. RISPERDAL [Suspect]
     Active Substance: RISPERIDONE
     Indication: ATTENTION DEFICIT/HYPERACTIVITY DISORDER
     Route: 048
  3. RISPERDAL [Suspect]
     Active Substance: RISPERIDONE
     Indication: DEVELOPMENTAL DELAY
     Route: 048
     Dates: end: 2008
  4. RISPERDAL [Suspect]
     Active Substance: RISPERIDONE
     Indication: DEVELOPMENTAL DELAY
     Route: 048
     Dates: start: 20070202, end: 20070709
  5. RISPERDAL [Suspect]
     Active Substance: RISPERIDONE
     Indication: ATTENTION DEFICIT/HYPERACTIVITY DISORDER
     Route: 048
     Dates: start: 20070202, end: 20070709
  6. ADDERALL [Concomitant]
     Active Substance: AMPHETAMINE ASPARTATE\AMPHETAMINE SULFATE\DEXTROAMPHETAMINE SACCHARATE\DEXTROAMPHETAMINE SULFATE
     Indication: DRUG THERAPY
  7. RISPERDAL [Suspect]
     Active Substance: RISPERIDONE
     Indication: DEVELOPMENTAL DELAY
     Route: 048
  8. DEPAKOTE [Concomitant]
     Active Substance: DIVALPROEX SODIUM
     Indication: DRUG THERAPY
     Route: 065
     Dates: start: 2007, end: 2014
  9. DEXEDRINE [Concomitant]
     Active Substance: DEXTROAMPHETAMINE SULFATE
     Indication: PRODUCT USED FOR UNKNOWN INDICATION
  10. RISPERDAL [Suspect]
     Active Substance: RISPERIDONE
     Indication: INTELLECTUAL DISABILITY
     Route: 048
     Dates: end: 2008
  11. CLONIDINE. [Concomitant]
     Active Substance: CLONIDINE
     Indication: DRUG THERAPY
  12. INVEGA [Suspect]
     Active Substance: PALIPERIDONE
     Indication: DRUG THERAPY
     Dosage: 2 HS
     Route: 048
  13. AMPHETAMINE [Concomitant]
     Active Substance: AMPHETAMINE
     Indication: DRUG THERAPY
  14. RITALIN [Concomitant]
     Active Substance: METHYLPHENIDATE HYDROCHLORIDE
     Indication: PRODUCT USED FOR UNKNOWN INDICATION
  15. RISPERDAL [Suspect]
     Active Substance: RISPERIDONE
     Indication: INTELLECTUAL DISABILITY
     Route: 048
  16. RISPERDAL [Suspect]
     Active Substance: RISPERIDONE
     Indication: INTELLECTUAL DISABILITY
     Route: 048
     Dates: start: 20070202, end: 20070709

REACTIONS (4)
  - Gynaecomastia [Recovered/Resolved]
  - Off label use [Unknown]
  - Emotional disorder [Unknown]
  - Product use issue [Unknown]

NARRATIVE: CASE EVENT DATE: 20070202
